FAERS Safety Report 4575411-4 (Version None)
Quarter: 2005Q1

REPORT INFORMATION
  Report Type: 
  Country: None (occurrence: None)
  Receive Date: 20050209
  Receipt Date: 20050131
  Transmission Date: 20050727
  Serious: Yes (Hospitalization)
  Sender: FDA-Public Use
  Company Number: FR-BRISTOL-MYERS SQUIBB COMPANY-12843975

PATIENT
  Age: 75 Year
  Sex: Female
  Weight: 59 kg

DRUGS (7)
  1. COUMADIN [Suspect]
     Dosage: TEMPORARILY STOPPED DUE TO THE EVENT, RE-STARTED AT REDUCED DOSE 2.5 MG DAILY
     Route: 048
     Dates: start: 20021031
  2. ALDACTONE [Concomitant]
     Dates: end: 20040101
  3. LASILIX [Concomitant]
     Dosage: DOSE INCREASED DUE TO EVENT
  4. RENITEC [Concomitant]
     Dates: start: 19990308, end: 20040101
  5. GLUCOR [Concomitant]
  6. DAONIL [Concomitant]
     Dates: start: 20010526
  7. HEMIGOXINE NATIVELLE [Concomitant]
     Route: 048

REACTIONS (16)
  - ABDOMINAL DISTENSION [None]
  - ANOREXIA [None]
  - ASCITES [None]
  - ASTHENIA [None]
  - ATRIAL FIBRILLATION [None]
  - DIABETES MELLITUS INADEQUATE CONTROL [None]
  - DIVERTICULUM INTESTINAL [None]
  - DYSPNOEA EXERTIONAL [None]
  - HYPOPROTHROMBINAEMIA [None]
  - INTERNATIONAL NORMALISED RATIO INCREASED [None]
  - LIMB DISCOMFORT [None]
  - OVERDOSE [None]
  - PULSE ABSENT [None]
  - RENAL FAILURE [None]
  - TACHYPNOEA [None]
  - URTICARIA PIGMENTOSA [None]
